FAERS Safety Report 24528885 (Version 1)
Quarter: 2024Q4

REPORT INFORMATION
  Report Type: Spontaneous
  Country: US (occurrence: None)
  Receive Date: 20241018
  Receipt Date: 20241018
  Transmission Date: 20250115
  Serious: No
  Sender: Public
  Company Number: None

PATIENT
  Sex: 0

DRUGS (1)
  1. PRAZOSIN [Suspect]
     Active Substance: PRAZOSIN\PRAZOSIN HYDROCHLORIDE

REACTIONS (1)
  - Treatment failure [None]
